FAERS Safety Report 4479868-9 (Version None)
Quarter: 2004Q4

REPORT INFORMATION
  Report Type: 
  Country: None (occurrence: None)
  Receive Date: 20041018
  Receipt Date: 20041006
  Transmission Date: 20050328
  Serious: Yes (Other)
  Sender: FDA-Public Use
  Company Number: 2004-10-0367

PATIENT
  Age: 56 Year
  Sex: Female
  Weight: 100 kg

DRUGS (26)
  1. TRILAFON [Suspect]
     Indication: SCHIZOAFFECTIVE DISORDER
     Dosage: 2 MLQ14 DAY INTRAMUSCULAR
     Route: 030
     Dates: start: 19831105, end: 19840123
  2. TRILAFON [Suspect]
     Indication: SCHIZOAFFECTIVE DISORDER
     Dosage: SEE IMAGE
     Route: 048
     Dates: start: 19780920, end: 19781113
  3. TRILAFON [Suspect]
     Indication: SCHIZOAFFECTIVE DISORDER
     Dosage: SEE IMAGE
     Route: 048
     Dates: start: 19790104, end: 19790417
  4. TRILAFON [Suspect]
     Indication: SCHIZOAFFECTIVE DISORDER
     Dosage: SEE IMAGE
     Route: 048
     Dates: start: 19830708, end: 19830819
  5. TRILAFON [Suspect]
     Indication: SCHIZOAFFECTIVE DISORDER
     Dosage: SEE IMAGE
     Route: 048
     Dates: start: 19831011, end: 19831103
  6. TRILAFON [Suspect]
     Indication: SCHIZOAFFECTIVE DISORDER
     Dosage: SEE IMAGE
     Route: 048
     Dates: start: 19891121, end: 19900112
  7. TRILAFON [Suspect]
     Indication: SCHIZOAFFECTIVE DISORDER
     Dosage: SEE IMAGE
     Route: 048
     Dates: start: 20001114, end: 20001119
  8. TRILAFON [Suspect]
     Indication: SCHIZOAFFECTIVE DISORDER
     Dosage: SEE IMAGE
     Route: 048
     Dates: start: 20010923, end: 20011121
  9. TRILAFON [Suspect]
     Indication: SCHIZOAFFECTIVE DISORDER
     Dosage: SEE IMAGE
     Route: 048
     Dates: start: 19780920
  10. CHLORPROMAZINE [Concomitant]
  11. CHLORPROMAZINE [Concomitant]
  12. AKINETON [Concomitant]
  13. DISIPAL [Concomitant]
  14. PHENERGAN [Concomitant]
  15. CISORDINOL [Concomitant]
  16. SAROTEX RETARD [Concomitant]
  17. HALCION [Concomitant]
  18. HALDOL DEPOT [Concomitant]
  19. LITAREX [Concomitant]
  20. NOZINAN [Concomitant]
  21. LITHONATE [Concomitant]
  22. ZESTRIL [Concomitant]
  23. ZYPREXA [Concomitant]
  24. MUCOMYST [Concomitant]
  25. ZIPRASIDONE [Concomitant]
  26. APODORM [Concomitant]

REACTIONS (1)
  - TOOTH INJURY [None]
